FAERS Safety Report 4376912-4 (Version None)
Quarter: 2004Q2

REPORT INFORMATION
  Report Type: 
  Country: None (occurrence: None)
  Receive Date: 20040608
  Receipt Date: 20040527
  Transmission Date: 20050107
  Serious: Yes (Hospitalization)
  Sender: FDA-Public Use
  Company Number: 30020055-W4B16T0-1

PATIENT
  Sex: Male
  Weight: 63 kg

DRUGS (1)
  1. DIANEAL LOW CALCIUM W/ DEXTROSE 1.5% [Suspect]
     Indication: PERITONEAL DIALYSIS
     Dosage: 2L, 4 EXCHANGES/DAY, INTRAPERITONEAL
     Route: 033
     Dates: start: 20031101, end: 20040528

REACTIONS (7)
  - BACTERIAL INFECTION [None]
  - DRUG INEFFECTIVE [None]
  - FUNGAL INFECTION [None]
  - HAEMODIALYSIS [None]
  - PERITONITIS [None]
  - PHARMACEUTICAL PRODUCT COMPLAINT [None]
  - PSEUDOMONAS INFECTION [None]
